FAERS Safety Report 15547030 (Version 1)
Quarter: 2018Q4

REPORT INFORMATION
  Report Type: Spontaneous
  Country: RU (occurrence: RU)
  Receive Date: 20181024
  Receipt Date: 20181024
  Transmission Date: 20190205
  Serious: Yes (Life-Threatening)
  Sender: FDA-Public Use
  Company Number: RU-SA-2018SA291196

PATIENT
  Age: 32 Year
  Sex: Female
  Weight: 61 kg

DRUGS (2)
  1. AUBAGIO [Suspect]
     Active Substance: TERIFLUNOMIDE
     Indication: MULTIPLE SCLEROSIS
     Dosage: 40 MG / 14 MG
     Route: 048
     Dates: start: 20180701, end: 20180706
  2. AKSOGLATIRAN FS [Suspect]
     Active Substance: GLATIRAMER ACETATE
     Indication: MULTIPLE SCLEROSIS
     Dosage: 40 MG / 14 MG
     Route: 048
     Dates: start: 20180701, end: 20180706

REACTIONS (5)
  - Asthenia [Recovering/Resolving]
  - Visual acuity reduced [Recovering/Resolving]
  - Bronchospasm [Recovering/Resolving]
  - Ataxia [Recovering/Resolving]
  - General physical health deterioration [Recovering/Resolving]
